FAERS Safety Report 5626227-9 (Version None)
Quarter: 2008Q1

REPORT INFORMATION
  Report Type: 
  Country: None (occurrence: None)
  Receive Date: 20080213
  Receipt Date: 20080213
  Transmission Date: 20080703
  Serious: Yes (Other)
  Sender: FDA-Public Use
  Company Number: None

PATIENT
  Sex: Female
  Weight: 63.9572 kg

DRUGS (16)
  1. INVEGA [Suspect]
     Indication: BORDERLINE PERSONALITY DISORDER
     Dosage: 6MG QHS PO
     Route: 048
     Dates: start: 20071108, end: 20071212
  2. NICOTINE [Concomitant]
  3. PROPRANOLOL [Concomitant]
  4. IMITREX [Concomitant]
  5. EFFEXOR XR [Concomitant]
  6. GEODON [Concomitant]
  7. VISTARIL [Concomitant]
  8. PYRIDIUM [Concomitant]
  9. MAXALT [Concomitant]
  10. PROZAC [Concomitant]
  11. DILANTIN [Concomitant]
  12. TRAZODONE HCL [Concomitant]
  13. NALTREXONE HYDROCHLORIDE [Concomitant]
  14. VIVITROL [Concomitant]
  15. ZOCOR [Concomitant]
  16. FISH OIL [Concomitant]

REACTIONS (2)
  - GALACTORRHOEA [None]
  - HYPERPROLACTINAEMIA [None]
